FAERS Safety Report 18228619 (Version 1)
Quarter: 2020Q3

REPORT INFORMATION
  Report Type: Spontaneous
  Country: US (occurrence: US)
  Receive Date: 20200903
  Receipt Date: 20200903
  Transmission Date: 20201103
  Serious: No
  Sender: FDA-Public Use
  Company Number: US-BECTON DICKINSON-2020BDN00138

PATIENT
  Sex: Female
  Weight: 123.36 kg

DRUGS (5)
  1. CHLORAPREP [Suspect]
     Active Substance: CHLORHEXIDINE GLUCONATE\ISOPROPYL ALCOHOL
     Indication: INFECTION PROPHYLAXIS
     Dosage: UNK
     Route: 061
     Dates: start: 20200221
  2. REMODULIN [Suspect]
     Active Substance: TREPROSTINIL
     Dosage: 0.010 ?G/KG, CONTINUOUS
     Route: 042
     Dates: start: 2020
  3. OPSUMIT [Concomitant]
     Active Substance: MACITENTAN
  4. UPTRAVI [Concomitant]
     Active Substance: SELEXIPAG
  5. REMODULIN [Suspect]
     Active Substance: TREPROSTINIL
     Indication: PULMONARY ARTERIAL HYPERTENSION
     Dosage: 0.003 ?G/KG, CONTINUOUS
     Route: 042
     Dates: start: 20200221

REACTIONS (3)
  - Application site erythema [Unknown]
  - Application site irritation [Unknown]
  - Application site pruritus [Unknown]

NARRATIVE: CASE EVENT DATE: 2020
